FAERS Safety Report 7814076-2 (Version None)
Quarter: 2011Q4

REPORT INFORMATION
  Report Type: 
  Country: None (occurrence: None)
  Receive Date: 20111014
  Receipt Date: 20111004
  Transmission Date: 20120403
  Serious: Yes (Other)
  Sender: FDA-Public Use
  Company Number: DE-JNJFOC-20111001536

PATIENT
  Age: 50 Year
  Sex: Male

DRUGS (4)
  1. RISPERIDONE [Suspect]
     Indication: PRODUCT USED FOR UNKNOWN INDICATION
     Route: 048
  2. PIPAMPERONE [Suspect]
     Indication: PRODUCT USED FOR UNKNOWN INDICATION
     Route: 048
  3. PALIPERIDONE [Suspect]
     Indication: SCHIZOPHRENIA, PARANOID TYPE
     Route: 030
  4. CLOZAPINE [Concomitant]
     Route: 065

REACTIONS (6)
  - HEART RATE INCREASED [None]
  - HYPOTENSION [None]
  - COLD SWEAT [None]
  - RESTLESSNESS [None]
  - CARDIOVASCULAR DISORDER [None]
  - TERMINAL INSOMNIA [None]
